FAERS Safety Report 24846597 (Version 1)
Quarter: 2025Q1

REPORT INFORMATION
  Report Type: Spontaneous
  Country: JP (occurrence: JP)
  Receive Date: 20250115
  Receipt Date: 20250115
  Transmission Date: 20250409
  Serious: Yes (Life-Threatening)
  Sender: EISAI
  Company Number: JP-Eisai-202411666_LEN_P_1

PATIENT
  Age: 70 Year
  Sex: Female

DRUGS (1)
  1. LENVATINIB [Suspect]
     Active Substance: LENVATINIB
     Indication: Anaplastic thyroid cancer
     Route: 048

REACTIONS (1)
  - Fistula [Unknown]
